FAERS Safety Report 14295892 (Version 2)
Quarter: 2017Q4

REPORT INFORMATION
  Report Type: Spontaneous
  Country: CN (occurrence: CN)
  Receive Date: 20171218
  Receipt Date: 20171229
  Transmission Date: 20180321
  Serious: Yes (Hospitalization)
  Sender: FDA-Public Use
  Company Number: PHHY2017CN185198

PATIENT
  Sex: Female

DRUGS (2)
  1. SEBIVO [Suspect]
     Active Substance: TELBIVUDINE
     Dosage: UNK
     Route: 048
     Dates: start: 20171208
  2. SEBIVO [Suspect]
     Active Substance: TELBIVUDINE
     Indication: HEPATITIS B
     Dosage: UNK
     Route: 048
     Dates: start: 201703

REACTIONS (5)
  - Vomiting [Recovered/Resolved]
  - Throat irritation [Unknown]
  - Wrong technique in product usage process [Unknown]
  - Oesophageal haemorrhage [Recovered/Resolved]
  - Gastric haemorrhage [Recovered/Resolved]

NARRATIVE: CASE EVENT DATE: 20171202
